FAERS Safety Report 17954894 (Version 2)
Quarter: 2020Q2

REPORT INFORMATION
  Report Type: Report from Study
  Country: US (occurrence: US)
  Receive Date: 20200629
  Receipt Date: 20200630
  Transmission Date: 20200714
  Serious: Yes (Other)
  Sender: FDA-Public Use
  Company Number: US-ROCHE-2629247

PATIENT
  Sex: Female
  Weight: 102.15 kg

DRUGS (6)
  1. BREO ELLIPTA [Concomitant]
     Active Substance: FLUTICASONE FUROATE\VILANTEROL TRIFENATATE
     Indication: ASTHMA
     Dosage: INHALER?1 PUFF DAILY
     Route: 055
     Dates: start: 2016
  2. PREVACID [Concomitant]
     Active Substance: LANSOPRAZOLE
     Route: 065
     Dates: start: 202004
  3. ALBUTEROL [SALBUTAMOL] [Concomitant]
     Active Substance: ALBUTEROL
     Indication: ASTHMA
     Dosage: INHALER?AS NEEDED
     Route: 055
  4. PREDNISONE. [Concomitant]
     Active Substance: PREDNISONE
     Indication: MULTIPLE SCLEROSIS
     Route: 048
     Dates: start: 202004
  5. PREDNISONE. [Concomitant]
     Active Substance: PREDNISONE
     Indication: ASTHMA
  6. OCREVUS [Suspect]
     Active Substance: OCRELIZUMAB
     Indication: RELAPSING-REMITTING MULTIPLE SCLEROSIS
     Dosage: ADMINISTERED THROUGH PORT IN HER CHEST?DATE OF TREATMENT: 22/MAY/2020
     Route: 065
     Dates: start: 20200519

REACTIONS (2)
  - Cellulitis [Recovered/Resolved]
  - Cystitis [Recovered/Resolved]
